FAERS Safety Report 11081717 (Version 2)
Quarter: 2015Q2

REPORT INFORMATION
  Report Type: Spontaneous
  Country: US (occurrence: US)
  Receive Date: 20150501
  Receipt Date: 20150618
  Transmission Date: 20150821
  Serious: Yes (Other)
  Sender: FDA-Public Use
  Company Number: US-GILEAD-2015-0150678

PATIENT
  Sex: Female

DRUGS (3)
  1. BLOOD [Concomitant]
     Active Substance: WHOLE BLOOD
     Dosage: UNK, Q1WK
     Route: 065
  2. HARVONI [Suspect]
     Active Substance: LEDIPASVIR\SOFOSBUVIR
     Indication: PRODUCT USED FOR UNKNOWN INDICATION
     Dosage: UNK
     Route: 065
     Dates: start: 20150305
  3. IRON [Concomitant]
     Active Substance: IRON
     Indication: ANAEMIA
     Route: 042

REACTIONS (3)
  - Anaemia [Unknown]
  - Transfusion reaction [Unknown]
  - Chest pain [Unknown]

NARRATIVE: CASE EVENT DATE: 201504
